FAERS Safety Report 22395040 (Version 1)
Quarter: 2023Q2

REPORT INFORMATION
  Report Type: Spontaneous
  Country: US (occurrence: None)
  Receive Date: 20230531
  Receipt Date: 20230531
  Transmission Date: 20230721
  Serious: Yes (Hospitalization)
  Sender: FDA-Public Use
  Company Number: None

PATIENT
  Sex: Male

DRUGS (1)
  1. SKYRIZI [Suspect]
     Active Substance: RISANKIZUMAB-RZAA
     Indication: Psoriasis
     Dosage: 150MG EVERY 12 NONTHS SUBCUTANEOUS?
     Route: 058
     Dates: start: 202112

REACTIONS (4)
  - Psoriasis [None]
  - Stress [None]
  - Cardiac failure congestive [None]
  - Chronic kidney disease [None]
